FAERS Safety Report 16078039 (Version 1)
Quarter: 2019Q1

REPORT INFORMATION
  Report Type: Spontaneous
  Country: US (occurrence: US)
  Receive Date: 20190315
  Receipt Date: 20190315
  Transmission Date: 20190418
  Serious: Yes (Hospitalization)
  Sender: FDA-Public Use
  Company Number: US-MYLANLABS-2019M1023464

PATIENT
  Age: 42 Year
  Sex: Female

DRUGS (3)
  1. EPINEPHRINE. [Concomitant]
     Active Substance: EPINEPHRINE
     Indication: PULSELESS ELECTRICAL ACTIVITY
     Route: 065
  2. TENECTEPLASE [Concomitant]
     Active Substance: TENECTEPLASE
     Indication: THROMBOSIS PROPHYLAXIS
     Route: 065
  3. ARGATROBAN. [Suspect]
     Active Substance: ARGATROBAN
     Indication: PULMONARY EMBOLISM
     Dosage: 2 MICROG/KG/MINUTES
     Route: 042

REACTIONS (1)
  - Hypofibrinogenaemia [Recovered/Resolved]
